FAERS Safety Report 23454137 (Version 4)
Quarter: 2024Q2

REPORT INFORMATION
  Report Type: Spontaneous
  Country: CN (occurrence: CN)
  Receive Date: 20240130
  Receipt Date: 20240516
  Transmission Date: 20240715
  Serious: Yes (Hospitalization, Other)
  Sender: FDA-Public Use
  Company Number: CN-BoehringerIngelheim-2024-BI-004029

PATIENT
  Age: 75 Year
  Sex: Male
  Weight: 57 kg

DRUGS (25)
  1. GILOTRIF [Suspect]
     Active Substance: AFATINIB
     Indication: Lung neoplasm malignant
     Route: 048
     Dates: start: 20230529, end: 20230711
  2. GILOTRIF [Suspect]
     Active Substance: AFATINIB
     Indication: Lung adenocarcinoma
     Route: 048
     Dates: start: 20230802, end: 20230828
  3. GILOTRIF [Suspect]
     Active Substance: AFATINIB
     Indication: Metastases to pleura
     Route: 048
     Dates: start: 20230908, end: 20231126
  4. GILOTRIF [Suspect]
     Active Substance: AFATINIB
     Indication: K-ras gene mutation
     Route: 048
     Dates: start: 20231201, end: 20231210
  5. GILOTRIF [Suspect]
     Active Substance: AFATINIB
     Route: 048
     Dates: start: 20231231, end: 20240105
  6. GILOTRIF [Suspect]
     Active Substance: AFATINIB
     Route: 048
     Dates: start: 20240113, end: 20240130
  7. GILOTRIF [Suspect]
     Active Substance: AFATINIB
     Route: 048
     Dates: start: 20240203, end: 20240218
  8. GILOTRIF [Suspect]
     Active Substance: AFATINIB
     Route: 048
     Dates: start: 20240221, end: 20240226
  9. GILOTRIF [Suspect]
     Active Substance: AFATINIB
     Route: 048
     Dates: start: 20240302, end: 20240315
  10. GILOTRIF [Suspect]
     Active Substance: AFATINIB
     Route: 048
     Dates: start: 20240320, end: 20240321
  11. D-1553 [Suspect]
     Active Substance: D-1553
     Indication: Lung neoplasm malignant
     Route: 048
     Dates: start: 20230529, end: 20230823
  12. D-1553 [Suspect]
     Active Substance: D-1553
     Indication: Lung adenocarcinoma
     Route: 048
     Dates: start: 20230824, end: 20230828
  13. D-1553 [Suspect]
     Active Substance: D-1553
     Indication: Metastases to pleura
     Route: 048
     Dates: start: 20230831, end: 20240325
  14. D-1553 [Suspect]
     Active Substance: D-1553
     Indication: K-ras gene mutation
  15. RABEPRAZOLE SODIUM [Concomitant]
     Active Substance: RABEPRAZOLE SODIUM
     Indication: Prophylaxis
     Route: 048
  16. ROSUVASTATIN CALCIUM [Concomitant]
     Active Substance: ROSUVASTATIN CALCIUM
     Indication: Coronary artery disease
     Route: 048
  17. CLOPIDOGREL BISULFATE [Concomitant]
     Active Substance: CLOPIDOGREL BISULFATE
     Indication: Coronary artery disease
     Route: 048
  18. metoprolol succinate sustained-release tablets [Concomitant]
     Indication: Hypertension
     Dosage: 1 TABLET PER TIME
     Route: 048
  19. METFORMIN [Concomitant]
     Active Substance: METFORMIN HYDROCHLORIDE
     Indication: Type 2 diabetes mellitus
     Dosage: 1 TABLET PER TIME
     Route: 048
  20. THEOPHYLLINE [Concomitant]
     Active Substance: THEOPHYLLINE
     Indication: Dyspnoea
     Dosage: 1 TABLET ON-DEMAND ADMINISTRATION
     Route: 048
  21. Naproxen Codeine Tablets [Concomitant]
     Indication: Back pain
     Dosage: 2 TABLETS ON-DEMAND ADMINISTRATION
     Route: 048
  22. SPIRONOLACTONE [Concomitant]
     Active Substance: SPIRONOLACTONE
     Indication: Polyuria
     Route: 048
     Dates: start: 20240111, end: 20240114
  23. SPIRONOLACTONE [Concomitant]
     Active Substance: SPIRONOLACTONE
     Route: 048
     Dates: start: 20240127, end: 20240130
  24. FUROSEMIDE [Concomitant]
     Active Substance: FUROSEMIDE
     Indication: Polyuria
     Route: 048
     Dates: start: 20240111, end: 20240114
  25. FUROSEMIDE [Concomitant]
     Active Substance: FUROSEMIDE
     Route: 048
     Dates: start: 20240127, end: 20240130

REACTIONS (16)
  - Metastases to pleura [Unknown]
  - Pneumonia [Recovered/Resolved with Sequelae]
  - Lacunar infarction [Unknown]
  - Ejection fraction decreased [Unknown]
  - COVID-19 [Unknown]
  - Diarrhoea [Recovered/Resolved]
  - Electrocardiogram Q wave abnormal [Unknown]
  - Bronchitis chronic [Unknown]
  - Emphysema [Unknown]
  - Diarrhoea [Recovered/Resolved]
  - Diarrhoea [Recovered/Resolved]
  - Diarrhoea [Recovered/Resolved]
  - Diarrhoea [Recovered/Resolved]
  - Diarrhoea [Recovered/Resolved]
  - Diarrhoea [Recovered/Resolved]
  - Off label use [Unknown]

NARRATIVE: CASE EVENT DATE: 20230823
